FAERS Safety Report 20452117 (Version 1)
Quarter: 2022Q1

REPORT INFORMATION
  Report Type: Spontaneous
  Country: GB (occurrence: GB)
  Receive Date: 20220209
  Receipt Date: 20220209
  Transmission Date: 20220423
  Serious: Yes (Other)
  Sender: FDA-Public Use
  Company Number: GB-AUROBINDO-AUR-APL-2017-41922

PATIENT
  Age: 52 Year
  Sex: Male
  Weight: 99.2 kg

DRUGS (46)
  1. PREGABALIN [Suspect]
     Active Substance: PREGABALIN
     Indication: Product used for unknown indication
     Dosage: 25 MILLIGRAM
     Route: 065
  2. GABAPENTIN [Suspect]
     Active Substance: GABAPENTIN
     Indication: Product used for unknown indication
     Dosage: UNK
     Route: 065
  3. ALENDRONIC ACID [Concomitant]
     Active Substance: ALENDRONIC ACID
     Indication: Product used for unknown indication
     Dosage: 70 MILLIGRAM, EVERY WEEK
     Route: 065
     Dates: start: 20170621
  4. AMITRIPTYLINE [Concomitant]
     Active Substance: AMITRIPTYLINE
     Indication: Product used for unknown indication
     Dosage: 30 MILLIGRAM, ONCE A DAY (AT NIGHT)
     Route: 065
     Dates: start: 20170620
  5. AMOROLFINE [Concomitant]
     Active Substance: AMOROLFINE
     Indication: Nail infection
     Dosage: 1 DOSAGE FORM, EVERY WEEK (APPLY TO THE INFECTED NAIL )
     Route: 065
     Dates: start: 20170620
  6. AMOROLFINE [Concomitant]
     Active Substance: AMOROLFINE
     Dosage: 1 DOSAGE FORM, EVERY WEEK (APPLY TO THE INFECTED NAIL )
     Route: 065
     Dates: start: 20170621
  7. ATORVASTATIN [Concomitant]
     Active Substance: ATORVASTATIN
     Indication: Product used for unknown indication
     Dosage: 20MG AND 40MG TABLETS
     Route: 065
  8. ATORVASTATIN [Concomitant]
     Active Substance: ATORVASTATIN
     Dosage: 1 DOSAGE FORM, ONCE A DAY
     Route: 065
     Dates: start: 20170621
  9. CALCIUM CARBONATE\CHOLECALCIFEROL [Concomitant]
     Active Substance: CALCIUM CARBONATE\CHOLECALCIFEROL
     Indication: Product used for unknown indication
     Dosage: 2 DOSAGE FORM, TWO TIMES A DAY (750MG/200UNIT)
     Route: 065
     Dates: start: 20170630
  10. BACLOFEN [Concomitant]
     Active Substance: BACLOFEN
     Indication: Product used for unknown indication
     Dosage: 25 MILLIGRAM, 3 TIMES A DAY
     Route: 065
     Dates: start: 20170620
  11. BACLOFEN [Concomitant]
     Active Substance: BACLOFEN
     Dosage: 25 MILLIGRAM, 3 TIMES A DAY
     Route: 065
     Dates: start: 20170621
  12. BENZYDAMINE [Concomitant]
     Active Substance: BENZYDAMINE
     Indication: Product used for unknown indication
     Dosage: 2-4 TIMES A DAY.
     Route: 048
     Dates: start: 20170620
  13. BENZYDAMINE [Concomitant]
     Active Substance: BENZYDAMINE
     Dosage: 1 DOSAGE FORM, AS NECESSARY (2-4 TIMES A DAY)
     Route: 065
     Dates: start: 20170621
  14. BISACODYL [Concomitant]
     Active Substance: BISACODYL
     Indication: Product used for unknown indication
     Dosage: 20 MILLIGRAM, ONCE A DAY (MORNING)
     Route: 054
     Dates: start: 20170620
  15. CARBAMAZEPINE [Concomitant]
     Active Substance: CARBAMAZEPINE
     Indication: Pain
     Dosage: 200 MILLIGRAM, TWO TIMES A DAY
     Route: 065
     Dates: start: 20170620
  16. CARBAMAZEPINE [Concomitant]
     Active Substance: CARBAMAZEPINE
     Dosage: 200 MILLIGRAM, TWO TIMES A DAY
     Route: 065
     Dates: start: 20170621
  17. CODEINE [Concomitant]
     Active Substance: CODEINE
     Indication: Product used for unknown indication
     Dosage: ONE OR 2 UP TO 4 TIMES A DAY.
     Route: 065
     Dates: start: 20170620
  18. CODEINE [Concomitant]
     Active Substance: CODEINE
     Dosage: UNK, ONE OR TWO TO BE TAKEN UP TO FOUR TIMES A DAY
     Route: 065
     Dates: start: 20170621
  19. DIAZEPAM [Concomitant]
     Active Substance: DIAZEPAM
     Indication: Muscle spasms
     Dosage: 5 MILLIGRAM, AS NECESSARY (3 TIMES A DAY)
     Route: 065
     Dates: start: 20170630
  20. DOCUSATE [Concomitant]
     Active Substance: DOCUSATE
     Indication: Product used for unknown indication
     Dosage: 500 MILLIGRAM (TWO IN MORNING, ONE AT MIDDAY AND TWO AT NIGHT)
     Route: 065
     Dates: start: 20170620
  21. DOCUSATE [Concomitant]
     Active Substance: DOCUSATE
     Dosage: 1500 MILLIGRAM (TWO IN MORNING, ONE AT MIDDAY AND TWO AT NIGHT)
     Route: 065
     Dates: start: 20170621
  22. LANOLIN\LIGHT MINERAL OIL\PARAFFIN [Concomitant]
     Active Substance: LANOLIN\LIGHT MINERAL OIL\PARAFFIN
     Indication: Product used for unknown indication
     Dosage: AS DIRECTED TO DRY AREAS.
     Route: 065
     Dates: start: 20170630
  23. FLUCLOXACILLIN [Concomitant]
     Active Substance: FLUCLOXACILLIN
     Indication: Product used for unknown indication
     Dosage: 500 MILLIGRAM, FOUR TIMES/DAY
     Route: 065
     Dates: start: 20170630
  24. FUROSEMIDE [Concomitant]
     Active Substance: FUROSEMIDE
     Indication: Product used for unknown indication
     Dosage: 20 MILLIGRAM, ONCE A DAY (AT LUNCHTIME)
     Route: 065
     Dates: start: 20170620
  25. FUROSEMIDE [Concomitant]
     Active Substance: FUROSEMIDE
     Dosage: 20 MILLIGRAM, ONCE A DAY (AT LUNCHTIME)
     Route: 065
     Dates: start: 20170621
  26. GENTAMICIN [Concomitant]
     Active Substance: GENTAMICIN
     Indication: Product used for unknown indication
     Dosage: 2 GTT DROPS, 3 TIMES A DAY (RIGHT EAR)
     Route: 065
     Dates: start: 20170630
  27. IPRATROPIUM [Concomitant]
     Active Substance: IPRATROPIUM
     Indication: Product used for unknown indication
     Dosage: 40 MICROGRAM, FOUR TIMES/DAY (PUFFS FOUR TIMES A DAY)
     Route: 055
     Dates: start: 20170621
  28. LANSOPRAZOLE [Concomitant]
     Active Substance: LANSOPRAZOLE
     Indication: Product used for unknown indication
     Dosage: 30 MILLIGRAM, TWO TIMES A DAY
     Route: 065
     Dates: start: 20170621
  29. LIDOCAINE [Concomitant]
     Active Substance: LIDOCAINE
     Indication: Product used for unknown indication
     Dosage: 1 DOSAGE FORM, ONCE A DAY
     Route: 065
     Dates: start: 20170620
  30. LIDOCAINE [Concomitant]
     Active Substance: LIDOCAINE
     Dosage: 1 DOSAGE FORM, ONCE A DAY
     Route: 065
     Dates: start: 20170621, end: 20170630
  31. MELATONIN [Concomitant]
     Active Substance: MELATONIN
     Indication: Product used for unknown indication
     Dosage: 2 MILLIGRAM, ONCE A DAY (AT NIGHT)
     Route: 065
     Dates: start: 20170630
  32. MAGNESIUM [Concomitant]
     Active Substance: MAGNESIUM
     Indication: Product used for unknown indication
     Dosage: 10 MILLILITER, AS NECESSARY (TWICE A DAY. 7.45-8.35%)
     Route: 048
     Dates: start: 20170620
  33. MAGNESIUM [Concomitant]
     Active Substance: MAGNESIUM
     Dosage: 10 MILLILITER, AS NECESSARY (TWICE A DAY. 7.45-8.35%)
     Route: 065
     Dates: start: 20170621
  34. ACETAMINOPHEN [Concomitant]
     Active Substance: ACETAMINOPHEN
     Indication: Product used for unknown indication
     Dosage: 1 OR 2 FOUR TIMES DAILY.
     Dates: start: 20170620, end: 20170904
  35. ACETAMINOPHEN [Concomitant]
     Active Substance: ACETAMINOPHEN
     Dosage: UNK, AS NECESSARY (1 OR 2 FOUR TIMES DAILY)
     Route: 065
     Dates: start: 20170621
  36. PREDNISOLONE [Concomitant]
     Active Substance: PREDNISOLONE
     Indication: Product used for unknown indication
     Dosage: 20MG/25MG ALTERNATE DAYS.
     Route: 065
     Dates: start: 20170621
  37. RAMIPRIL [Concomitant]
     Active Substance: RAMIPRIL
     Indication: Product used for unknown indication
     Dosage: 2.5 MILLIGRAM, ONCE A DAY
     Route: 065
     Dates: start: 20170621
  38. HERBALS\SENNOSIDES [Concomitant]
     Active Substance: HERBALS\SENNOSIDES
     Indication: Product used for unknown indication
     Dosage: 15 MILLIGRAM, AS NECESSARY (TWICE A DAY.)
     Route: 065
     Dates: start: 20170620
  39. HERBALS\SENNOSIDES [Concomitant]
     Active Substance: HERBALS\SENNOSIDES
     Dosage: 15 MILLIGRAM, AS NECESSARY (TWICE A DAY.)
     Route: 065
     Dates: start: 20170621
  40. THIAMINE [Concomitant]
     Active Substance: THIAMINE
     Indication: Product used for unknown indication
     Dosage: 300 MILLIGRAM, ONCE A DAY (ONE IN THE MORNING, LUNCH AND AT NIGHT)
     Route: 065
     Dates: start: 20170620
  41. THIAMINE [Concomitant]
     Active Substance: THIAMINE
     Dosage: 300 MILLIGRAM, ONCE A DAY (ONE IN THE MORNING, LUNCH AND AT NIGHT)
     Route: 065
     Dates: start: 20170621
  42. GLYCOPYRRONIUM\INDACATEROL [Concomitant]
     Active Substance: GLYCOPYRRONIUM\INDACATEROL
     Indication: Product used for unknown indication
     Dosage: 1 DOSAGE FORM, ONCE A DAY (85MICROGRAM/43MICROGRAM)
     Route: 055
     Dates: start: 20170621
  43. GLYCOPYRRONIUM\INDACATEROL [Concomitant]
     Active Substance: GLYCOPYRRONIUM\INDACATEROL
     Dosage: 1 DOSAGE FORM, ONCE A DAY
     Route: 055
     Dates: start: 20170714
  44. VENTOLIN [Concomitant]
     Active Substance: ALBUTEROL SULFATE
     Indication: Product used for unknown indication
     Dosage: 200 MICROGRAM, AS NECESSARY
     Route: 055
     Dates: start: 20170621
  45. ZOPICLONE [Concomitant]
     Active Substance: ZOPICLONE
     Indication: Product used for unknown indication
     Dosage: 3.75 MILLIGRAM, AS NECESSARY (AT NIGHT)
     Route: 065
     Dates: start: 20170621
  46. HYDROCORTISONE ACETATE [Concomitant]
     Active Substance: HYDROCORTISONE ACETATE
     Indication: Product used for unknown indication
     Dosage: UNK
     Route: 065

REACTIONS (2)
  - Dyskinesia [Recovered/Resolved]
  - Tremor [Recovered/Resolved]
